FAERS Safety Report 8456385-2 (Version None)
Quarter: 2012Q2

REPORT INFORMATION
  Report Type: 
  Country: None (occurrence: None)
  Receive Date: 20120621
  Receipt Date: 20120620
  Transmission Date: 20120825
  Serious: Yes (Other)
  Sender: FDA-Public Use
  Company Number: SI-GLAXOSMITHKLINE-B0809576A

PATIENT
  Sex: Female

DRUGS (9)
  1. VENLAFAXINE HCL [Concomitant]
     Dosage: 150MG PER DAY
     Route: 065
  2. NEXIUM [Concomitant]
     Route: 065
  3. POTIGA [Suspect]
     Indication: PARTIAL SEIZURES
     Dosage: 600MG PER DAY
     Route: 065
     Dates: start: 20120425
  4. ZOLPIDEM [Concomitant]
     Dosage: 10MG PER DAY
     Route: 065
  5. IRON [Concomitant]
     Route: 065
  6. VENTOLIN [Concomitant]
     Route: 065
  7. MIRTAZAPINE [Concomitant]
     Dosage: 15MG PER DAY
     Route: 065
  8. TEGRETOL [Concomitant]
     Dosage: 400MG PER DAY
     Route: 065
  9. SYMBICORT [Concomitant]
     Route: 065

REACTIONS (1)
  - DIARRHOEA [None]
